FAERS Safety Report 4704104-5 (Version None)
Quarter: 2005Q2

REPORT INFORMATION
  Report Type: 
  Country: None (occurrence: None)
  Receive Date: 20050629
  Receipt Date: 20050614
  Transmission Date: 20051028
  Serious: No
  Sender: FDA-Public Use
  Company Number: 11525

PATIENT
  Age: 50 Year
  Sex: Female

DRUGS (5)
  1. MITOXANTRONE [Suspect]
     Indication: BREAST CANCER
     Dosage: 50 MG/M2 TOTAL
  2. FLUOROURACIL [Suspect]
     Indication: BREAST CANCER
     Dosage: 2500 MG/M2 TOTAL
  3. VINCRISTINE [Suspect]
     Indication: BREAST CANCER
     Dosage: 10 MG/M2 TOTAL
  4. CYCLOPHOSPHAMIDE [Suspect]
     Indication: BREAST CANCER
     Dosage: 2500 MG/M2 TOTAL
  5. TAMOXIFEN [Suspect]
     Indication: BREAST CANCER

REACTIONS (1)
  - ACUTE PROMYELOCYTIC LEUKAEMIA [None]
